FAERS Safety Report 21875191 (Version 1)
Quarter: 2023Q1

REPORT INFORMATION
  Report Type: Spontaneous
  Country: CA (occurrence: CA)
  Receive Date: 20230117
  Receipt Date: 20230117
  Transmission Date: 20230418
  Serious: Yes (Other)
  Sender: FDA-Public Use
  Company Number: CA-ABBVIE-4274076

PATIENT
  Age: 18 Year

DRUGS (1)
  1. HUMIRA [Suspect]
     Active Substance: ADALIMUMAB
     Indication: Juvenile idiopathic arthritis
     Route: 058

REACTIONS (5)
  - Mental disorder [Unknown]
  - Influenza [Unknown]
  - Syncope [Unknown]
  - Dizziness [Unknown]
  - Asthenia [Unknown]
